FAERS Safety Report 5910284-6 (Version None)
Quarter: 2008Q4

REPORT INFORMATION
  Report Type: 
  Country: None (occurrence: None)
  Receive Date: 20081007
  Receipt Date: 20080905
  Transmission Date: 20090506
  Serious: No
  Sender: FDA-Public Use
  Company Number: A0746118A

PATIENT
  Age: 73 Year
  Sex: Female

DRUGS (3)
  1. ADVAIR DISKUS 100/50 [Suspect]
     Indication: EMPHYSEMA
     Dosage: 1PUFF TWICE PER DAY
     Route: 055
     Dates: start: 20080818, end: 20080819
  2. COMBIVENT [Concomitant]
  3. UNKNOWN MEDICATION [Concomitant]

REACTIONS (2)
  - CHEST DISCOMFORT [None]
  - NON-CARDIAC CHEST PAIN [None]
